FAERS Safety Report 10658529 (Version 2)
Quarter: 2014Q4

REPORT INFORMATION
  Report Type: Spontaneous
  Country: US (occurrence: US)
  Receive Date: 20141217
  Receipt Date: 20141217
  Transmission Date: 20150529
  Serious: No
  Sender: FDA-Public Use
  Company Number: US-GLAXOSMITHKLINE-A1068370A

PATIENT

DRUGS (2)
  1. VOTRIENT [Suspect]
     Active Substance: PAZOPANIB HYDROCHLORIDE
     Indication: MALIGNANT NEOPLASM OF RENAL PELVIS
  2. VOTRIENT [Suspect]
     Active Substance: PAZOPANIB HYDROCHLORIDE
     Indication: RENAL CANCER
     Dosage: FOUR 200 MG TABLETS (800 MG) DAILY
     Route: 065
     Dates: end: 20140327

REACTIONS (3)
  - Diarrhoea [Unknown]
  - Vomiting [Unknown]
  - Influenza [Unknown]

NARRATIVE: CASE EVENT DATE: 201403
